FAERS Safety Report 7300664-9 (Version None)
Quarter: 2011Q1

REPORT INFORMATION
  Report Type: 
  Country: None (occurrence: None)
  Receive Date: 20110218
  Receipt Date: 20110215
  Transmission Date: 20110831
  Serious: Yes (Other)
  Sender: FDA-Public Use
  Company Number: DE-SHIRE-SPV1-2011-00247

PATIENT
  Age: 39 Year
  Sex: Female

DRUGS (1)
  1. EQUASYM [Suspect]
     Indication: OFF LABEL USE
     Dosage: 10 MG, OTHER
     Route: 048
     Dates: start: 20070101

REACTIONS (6)
  - WEIGHT DECREASED [None]
  - ARTHRALGIA [None]
  - DELUSION [None]
  - PAIN IN EXTREMITY [None]
  - OFF LABEL USE [None]
  - MENTAL DISORDER [None]
